FAERS Safety Report 18286043 (Version 6)
Quarter: 2021Q2

REPORT INFORMATION
  Report Type: Report from Study
  Country: AR (occurrence: AR)
  Receive Date: 20200919
  Receipt Date: 20210616
  Transmission Date: 20210717
  Serious: Yes (Other)
  Sender: FDA-Public Use
  Company Number: AR-INCYTE CORPORATION-2020IN008793

PATIENT

DRUGS (4)
  1. JAKAVI [Suspect]
     Active Substance: RUXOLITINIB
     Dosage: 30 MG
     Route: 048
     Dates: start: 20150311
  2. JAKAVI [Suspect]
     Active Substance: RUXOLITINIB
     Indication: MYELOFIBROSIS
     Dosage: 15 MG, BID
     Route: 048
     Dates: start: 20150301
  3. JAKAVI [Suspect]
     Active Substance: RUXOLITINIB
     Dosage: 30 MG, QD
     Route: 047
     Dates: start: 20150301
  4. JAKAVI [Suspect]
     Active Substance: RUXOLITINIB
     Dosage: 7.5 MG, QD
     Route: 048

REACTIONS (17)
  - Feeling abnormal [Unknown]
  - Nephrolithiasis [Unknown]
  - Wrong technique in product usage process [Unknown]
  - Vomiting [Unknown]
  - Somnolence [Unknown]
  - Confusional state [Unknown]
  - Inappropriate schedule of product administration [Unknown]
  - Fatigue [Unknown]
  - Thrombosis [Unknown]
  - Total lung capacity increased [Unknown]
  - Incorrect route of product administration [Unknown]
  - Abdominal pain [Unknown]
  - Agitation [Unknown]
  - Total lung capacity decreased [Unknown]
  - Renal pain [Unknown]
  - Dizziness [Unknown]
  - Dyspnoea [Unknown]

NARRATIVE: CASE EVENT DATE: 20190101
